FAERS Safety Report 4370980-1 (Version None)
Quarter: 2004Q2

REPORT INFORMATION
  Report Type: 
  Country: None (occurrence: None)
  Receive Date: 20040603
  Receipt Date: 20040603
  Transmission Date: 20050107
  Serious: Yes (Life-Threatening, Hospitalization)
  Sender: FDA-Public Use
  Company Number: None

PATIENT
  Age: 49 Year
  Sex: Male
  Weight: 83.9154 kg

DRUGS (1)
  1. LIPITOR [Suspect]
     Dosage: 1X DAILY ORAL
     Route: 048
     Dates: start: 20020101, end: 20040101

REACTIONS (6)
  - AMNESIA [None]
  - BACK PAIN [None]
  - FEELING ABNORMAL [None]
  - LIVER DISORDER [None]
  - NAUSEA [None]
  - PAIN IN EXTREMITY [None]
